FAERS Safety Report 7148082-0 (Version None)
Quarter: 2010Q4

REPORT INFORMATION
  Report Type: 
  Country: None (occurrence: None)
  Receive Date: 20101209
  Receipt Date: 20100804
  Transmission Date: 20110411
  Serious: No
  Sender: FDA-Public Use
  Company Number: US-ABBOTT-10P-163-0655904-00

PATIENT
  Sex: Female
  Weight: 78.542 kg

DRUGS (3)
  1. VICODIN ES [Suspect]
     Indication: OSTEOARTHRITIS
     Dosage: 7.5/750 MG
     Dates: start: 20080101
  2. LOTENSIN [Suspect]
     Indication: HYPERTENSION
  3. PAXIL [Concomitant]
     Indication: DEPRESSION

REACTIONS (6)
  - ARTHRALGIA [None]
  - DRUG INEFFECTIVE [None]
  - HYPOAESTHESIA [None]
  - LETHARGY [None]
  - PRURITUS [None]
  - SOMNOLENCE [None]
